FAERS Safety Report 9339113 (Version 1)
Quarter: 2013Q2

REPORT INFORMATION
  Report Type: Spontaneous
  Country: US (occurrence: US)
  Receive Date: 20130610
  Receipt Date: 20130610
  Transmission Date: 20140414
  Serious: Yes (Death, Hospitalization)
  Sender: FDA-Public Use
  Company Number: US-RANBAXY-2013US-70032

PATIENT
  Age: 29 Year
  Sex: Male

DRUGS (5)
  1. SUMATRIPTAN [Suspect]
     Indication: HEADACHE
     Dosage: 100 MG, PRN
     Route: 048
     Dates: start: 200906, end: 201002
  2. ADDERALL [Suspect]
     Indication: ATTENTION DEFICIT/HYPERACTIVITY DISORDER
     Dosage: (30 MG IN MORNING AND 25 MG IN EVENING
     Route: 065
     Dates: start: 200906
  3. METHYLPHENIDATE [Suspect]
     Indication: ATTENTION DEFICIT/HYPERACTIVITY DISORDER
     Dosage: 18 MG DAILY
     Route: 065
     Dates: start: 2000
  4. METHYLPHENIDATE [Suspect]
     Indication: ATTENTION DEFICIT/HYPERACTIVITY DISORDER
     Dosage: 36 MG/DAY
     Route: 065
  5. ATOMOXETINE [Concomitant]
     Indication: ATTENTION DEFICIT/HYPERACTIVITY DISORDER
     Route: 065

REACTIONS (7)
  - Coronary artery disease [Fatal]
  - Myalgia [Unknown]
  - Fall [None]
  - Pulseless electrical activity [None]
  - Cardiac arrest [None]
  - Coronary artery occlusion [None]
  - Myocardial infarction [None]
